FAERS Safety Report 21726655 (Version 1)
Quarter: 2022Q4

REPORT INFORMATION
  Report Type: Report from Study
  Country: FR (occurrence: None)
  Receive Date: 20221214
  Receipt Date: 20221214
  Transmission Date: 20230113
  Serious: Yes (Other)
  Sender: FDA-Public Use
  Company Number: FR-Merck Healthcare KGaA-9370992

PATIENT
  Sex: Female

DRUGS (1)
  1. LEVOTHYROXINE [Suspect]
     Active Substance: LEVOTHYROXINE
     Indication: Hypothyroidism

REACTIONS (6)
  - Femoral neck fracture [Unknown]
  - Syncope [Unknown]
  - Cardiac disorder [Unknown]
  - Hyperthyroidism [Unknown]
  - Asthenia [Unknown]
  - Alopecia [Unknown]

NARRATIVE: CASE EVENT DATE: 20170101
